FAERS Safety Report 9504747 (Version 1)
Quarter: 2013Q3

REPORT INFORMATION
  Report Type: Spontaneous
  Country: US (occurrence: US)
  Receive Date: 20130906
  Receipt Date: 20130906
  Transmission Date: 20140515
  Serious: Yes (Other)
  Sender: FDA-Public Use
  Company Number: US-PFIZER INC-2013256400

PATIENT
  Age: 50 Year
  Sex: Female

DRUGS (4)
  1. ENBREL [Suspect]
     Indication: RHEUMATOID ARTHRITIS
     Dosage: 50 MG, QWK
     Dates: start: 20000101
  2. CORTISONE [Suspect]
     Dosage: UNK
  3. PLAQUENIL [Suspect]
     Dosage: UNK
  4. ARAVA [Suspect]
     Dosage: UNK

REACTIONS (7)
  - Diabetes mellitus [Recovered/Resolved]
  - Dyspnoea [Unknown]
  - Heart rate increased [Unknown]
  - Panic disorder [Unknown]
  - Insomnia [Unknown]
  - Weight decreased [Unknown]
  - Drug ineffective [Unknown]
